FAERS Safety Report 8763612 (Version 2)
Quarter: 2013Q2

REPORT INFORMATION
  Report Type: Spontaneous
  Country: US (occurrence: US)
  Receive Date: 20120831
  Receipt Date: 20130430
  Transmission Date: 20140414
  Serious: No
  Sender: FDA-Public Use
  Company Number: US-009507513-1208USA001109

PATIENT
  Age: 49 Year
  Sex: Female

DRUGS (1)
  1. COSOPT [Suspect]
     Indication: GLAUCOMA
     Dosage: 0.5 ML, QD
     Route: 047
     Dates: start: 200608

REACTIONS (2)
  - Eye irritation [Recovering/Resolving]
  - Product odour abnormal [Unknown]
